FAERS Safety Report 5527400-0 (Version None)
Quarter: 2007Q4

REPORT INFORMATION
  Report Type: 
  Country: None (occurrence: None)
  Receive Date: 20071123
  Receipt Date: 20071114
  Transmission Date: 20080405
  Serious: Yes (Other)
  Sender: FDA-Public Use
  Company Number: 020749

PATIENT
  Sex: Female

DRUGS (4)
  1. MEDROXYPROGESTERONE ACETATE(MEDROXYPROGRESTONE ACETATE) TABLET [Suspect]
     Dosage: ORAL
     Route: 048
     Dates: start: 19960101, end: 19990701
  2. PREMARIN [Suspect]
     Dates: start: 19850101, end: 19990701
  3. PREMPRO [Suspect]
     Dates: start: 19850101, end: 19990701
  4. PROVERA [Suspect]
     Dates: start: 19850101, end: 19990701

REACTIONS (1)
  - BREAST CANCER FEMALE [None]
